FAERS Safety Report 14227758 (Version 2)
Quarter: 2018Q1

REPORT INFORMATION
  Report Type: Report from Study
  Country: US (occurrence: US)
  Receive Date: 20171127
  Receipt Date: 20180131
  Transmission Date: 20180508
  Serious: Yes (Hospitalization)
  Sender: FDA-Public Use
  Company Number: US-BAYER-2017-195243

PATIENT
  Age: 66 Year
  Sex: Female

DRUGS (2)
  1. NEXAVAR [Suspect]
     Active Substance: SORAFENIB
     Indication: GASTROINTESTINAL STROMAL TUMOUR
     Dosage: UNK
     Route: 048
     Dates: start: 20171003, end: 201710
  2. NEXAVAR [Suspect]
     Active Substance: SORAFENIB
     Indication: CONNECTIVE TISSUE NEOPLASM
     Dosage: DAILY DOSE 200 MG (STARTED WITH A GOAL OF INCREASING TO 400 MG DAILY)
     Route: 048
     Dates: start: 20170925, end: 20170929

REACTIONS (17)
  - Vision blurred [None]
  - Atrial fibrillation [None]
  - Acute kidney injury [Recovered/Resolved]
  - Hypophagia [None]
  - Off label use [None]
  - Pancreatitis [None]
  - Pancreatic pseudocyst [None]
  - Dehydration [None]
  - Electrolyte imbalance [Recovered/Resolved]
  - Mental status changes [Recovered/Resolved]
  - Abdominal pain [None]
  - Asthenia [None]
  - Off label use [None]
  - Product use in unapproved indication [None]
  - Somnolence [None]
  - Retching [None]
  - Hypertension [None]

NARRATIVE: CASE EVENT DATE: 201709
